FAERS Safety Report 21417595 (Version 2)
Quarter: 2022Q4

REPORT INFORMATION
  Report Type: Spontaneous
  Country: US (occurrence: US)
  Receive Date: 20221006
  Receipt Date: 20221012
  Transmission Date: 20230112
  Serious: No
  Sender: FDA-Public Use
  Company Number: ae020US22

PATIENT
  Sex: Female

DRUGS (3)
  1. ASCLERA [Suspect]
     Active Substance: POLIDOCANOL
     Indication: Product used for unknown indication
  2. ASCLERA [Suspect]
     Active Substance: POLIDOCANOL
     Indication: Product used for unknown indication
  3. UNSPECIFIED INGREDIENT [Concomitant]
     Active Substance: UNSPECIFIED INGREDIENT
     Indication: Wound

REACTIONS (1)
  - Application site wound [Unknown]
